FAERS Safety Report 8789366 (Version 1)
Quarter: 2012Q4

REPORT INFORMATION
  Report Type: Spontaneous
  Country: US (occurrence: None)
  Receive Date: 20120910
  Receipt Date: 20120910
  Transmission Date: 20130627
  Serious: Yes (Congenital Anomaly)
  Sender: FDA-Public Use
  Company Number: None

PATIENT
  Age: 32 Year
  Sex: Male
  Weight: 90.72 kg

DRUGS (2)
  1. FINASTERIDE [Suspect]
     Indication: PROPHYLAXIS
     Route: 048
     Dates: start: 20010101, end: 20120907
  2. FINASTERIDE [Suspect]
     Indication: HAIR LOSS
     Route: 048
     Dates: start: 20010101, end: 20120907

REACTIONS (2)
  - Exposure via father [None]
  - Exposure via body fluid [None]
